FAERS Safety Report 22714341 (Version 14)
Quarter: 2025Q3

REPORT INFORMATION
  Report Type: Report from Study
  Country: US (occurrence: US)
  Receive Date: 20230718
  Receipt Date: 20250902
  Transmission Date: 20251020
  Serious: Yes (Hospitalization)
  Sender: TAKEDA
  Company Number: US-TAKEDA-US202009349

PATIENT
  Age: 15 Year
  Sex: Female
  Weight: 68 kg

DRUGS (40)
  1. HUMAN IMMUNOGLOBULIN G [Suspect]
     Active Substance: HUMAN IMMUNOGLOBULIN G
     Indication: Primary immunodeficiency syndrome
     Dosage: 30 GRAM, Q4WEEKS
  2. HUMAN IMMUNOGLOBULIN G [Suspect]
     Active Substance: HUMAN IMMUNOGLOBULIN G
     Indication: Type 2 diabetes mellitus
  3. HUMAN IMMUNOGLOBULIN G [Suspect]
     Active Substance: HUMAN IMMUNOGLOBULIN G
     Indication: Hyperlipidaemia
  4. HUMAN IMMUNOGLOBULIN G [Suspect]
     Active Substance: HUMAN IMMUNOGLOBULIN G
     Indication: Immunodeficiency common variable
  5. ACETAMINOPHEN [Concomitant]
     Active Substance: ACETAMINOPHEN
  6. EPINEPHRINE [Concomitant]
     Active Substance: EPINEPHRINE
  7. MAGNESIUM [Concomitant]
     Active Substance: MAGNESIUM
  8. TOPIRAMATE [Concomitant]
     Active Substance: TOPIRAMATE
  9. MIRALAX [Concomitant]
     Active Substance: POLYETHYLENE GLYCOL 3350
  10. DEXAMETHASONE [Concomitant]
     Active Substance: DEXAMETHASONE
  11. FLUOXETINE HYDROCHLORIDE [Concomitant]
     Active Substance: FLUOXETINE HYDROCHLORIDE
  12. SODIUM CHLORIDE [Concomitant]
     Active Substance: SODIUM CHLORIDE
  13. ABILIFY [Concomitant]
     Active Substance: ARIPIPRAZOLE
  14. CLONAZEPAM [Concomitant]
     Active Substance: CLONAZEPAM
  15. LIDOCAINE [Concomitant]
     Active Substance: LIDOCAINE
  16. HYDROCORTISONE [Concomitant]
     Active Substance: HYDROCORTISONE
  17. BUSPIRONE HCL [Concomitant]
     Active Substance: BUSPIRONE HYDROCHLORIDE
  18. DIPHENHYDRAMINE HYDROCHLORIDE [Concomitant]
     Active Substance: DIPHENHYDRAMINE HYDROCHLORIDE
  19. ARIPIPRAZOLE [Concomitant]
     Active Substance: ARIPIPRAZOLE
  20. FISH OIL [Concomitant]
     Active Substance: FISH OIL
  21. AZITHROMYCIN [Concomitant]
     Active Substance: AZITHROMYCIN
  22. IBUPROFEN [Concomitant]
     Active Substance: IBUPROFEN
  23. NASACORT [Concomitant]
     Active Substance: TRIAMCINOLONE ACETONIDE
  24. VITAMIN D3 [Concomitant]
     Active Substance: CHOLECALCIFEROL
  25. OMEPRAZOLE [Concomitant]
     Active Substance: OMEPRAZOLE
  26. FAMOTIDINE [Concomitant]
     Active Substance: FAMOTIDINE
  27. FERROUS SULFATE [Concomitant]
     Active Substance: FERROUS SULFATE
  28. SIMETHICONE (DIMETHICONE) [Concomitant]
     Active Substance: DIMETHICONE
  29. FERROUS SULFATE [Concomitant]
     Active Substance: FERROUS SULFATE
  30. TUMS [Concomitant]
     Active Substance: CALCIUM CARBONATE
  31. CALCIUM\VITAMIN D [Concomitant]
     Active Substance: CALCIUM\VITAMIN D
  32. MELATONIN [Concomitant]
     Active Substance: MELATONIN
  33. SOLU-CORTEF [Concomitant]
     Active Substance: HYDROCORTISONE SODIUM SUCCINATE
  34. PROPRANOLOL HYDROCHLORIDE [Concomitant]
     Active Substance: PROPRANOLOL HYDROCHLORIDE
  35. NORETHINDRONE [Concomitant]
     Active Substance: NORETHINDRONE
  36. SUCRALFATE [Concomitant]
     Active Substance: SUCRALFATE
  37. TRAZODONE HCL [Concomitant]
     Active Substance: TRAZODONE HYDROCHLORIDE
  38. NALTREXONE HYDROCHLORIDE [Concomitant]
     Active Substance: NALTREXONE HYDROCHLORIDE
  39. NORETHINDRONE ACETATE AND ETHINYL ESTRADIOL [Concomitant]
     Active Substance: ETHINYL ESTRADIOL\NORETHINDRONE ACETATE
  40. DOXYCYCLINE HYCLATE [Concomitant]
     Active Substance: DOXYCYCLINE HYCLATE

REACTIONS (15)
  - Eating disorder [Unknown]
  - Depression [Unknown]
  - Nasopharyngitis [Unknown]
  - Viral infection [Unknown]
  - Infectious mononucleosis [Unknown]
  - Candida infection [Unknown]
  - Streptococcal infection [Unknown]
  - Illness [Unknown]
  - Ovarian cyst [Unknown]
  - Pharyngitis streptococcal [Unknown]
  - COVID-19 [Unknown]
  - Gastrointestinal disorder [Unknown]
  - Insurance issue [Recovered/Resolved]
  - Product use issue [Recovered/Resolved]
  - Fatigue [Unknown]

NARRATIVE: CASE EVENT DATE: 20210923
